FAERS Safety Report 23889787 (Version 2)
Quarter: 2024Q2

REPORT INFORMATION
  Report Type: Spontaneous
  Country: US (occurrence: US)
  Receive Date: 20240523
  Receipt Date: 20240619
  Transmission Date: 20240716
  Serious: No
  Sender: FDA-Public Use
  Company Number: US-HETERO-HET2024US01486

PATIENT
  Sex: Male

DRUGS (5)
  1. GABAPENTIN [Suspect]
     Active Substance: GABAPENTIN
     Indication: Muscle spasms
     Dosage: GABAPENTIN IN THE MORNING AND AT NOON
     Route: 065
  2. GABAPENTIN [Suspect]
     Active Substance: GABAPENTIN
     Indication: Burning sensation
     Dosage: TAKING IT AT BEDTIME (DOSE DECREASED)
     Route: 065
  3. ORGOVYX [Suspect]
     Active Substance: RELUGOLIX
     Indication: Prostate cancer
     Dosage: 300 MILLIGRAM, ONE TIME DOSE
     Route: 048
     Dates: start: 20210928, end: 20210928
  4. ORGOVYX [Suspect]
     Active Substance: RELUGOLIX
     Dosage: 120 MILLIGRAM, ONCE DAILY
     Route: 048
     Dates: start: 20210929
  5. XTANDI [Suspect]
     Active Substance: ENZALUTAMIDE
     Indication: Prostate cancer
     Dosage: 120 MILLIGRAM, ONCE DAILY
     Route: 048

REACTIONS (5)
  - Abnormal weight gain [Unknown]
  - Muscular weakness [Unknown]
  - Unevaluable event [Unknown]
  - Fatigue [Unknown]
  - Product use in unapproved indication [Unknown]
